FAERS Safety Report 24357397 (Version 1)
Quarter: 2024Q3

REPORT INFORMATION
  Report Type: Report from Study
  Country: CA (occurrence: CA)
  Receive Date: 20240924
  Receipt Date: 20240924
  Transmission Date: 20241017
  Serious: Yes (Death, Other)
  Sender: MYLAN
  Company Number: CA-MYLANLABS-2024M1064877

PATIENT
  Age: 57 Year
  Sex: Male
  Weight: 118.4 kg

DRUGS (14)
  1. CLOZAPINE [Suspect]
     Active Substance: CLOZAPINE
     Indication: Schizophrenia
     Dosage: UNK
     Route: 065
     Dates: start: 19990817
  2. CLOZAPINE [Suspect]
     Active Substance: CLOZAPINE
     Indication: Schizophrenia
     Dosage: 400 MILLIGRAM, PM (HS, 2 TABLETS AT BEDTIME)
     Route: 048
     Dates: start: 20240323
  3. CLOZAPINE [Suspect]
     Active Substance: CLOZAPINE
     Indication: Schizophrenia
     Dosage: 100 MILLIGRAM, AM (1 TABLET ONCE PER DAY IN THE MORNING)
     Route: 048
     Dates: start: 20240323
  4. CLOZAPINE [Suspect]
     Active Substance: CLOZAPINE
     Indication: Schizophrenia
     Dosage: 25 MILLIGRAM, AM (1 TABLET ONCE PER DAY IN THE MORNING)
     Route: 048
     Dates: start: 20240323
  5. ACETAMINOPHEN [Concomitant]
     Active Substance: ACETAMINOPHEN
     Dosage: 2 DOSAGE FORM, QID (4X PER DAY, AS NEEDED)
     Route: 065
     Dates: start: 20240323
  6. LOPERAMIDE [Concomitant]
     Active Substance: LOPERAMIDE
     Indication: Diarrhoea
     Dosage: 1 DOSAGE FORM, PRN (1 TABLET AFTER DIARRHEA AS NEEDED) (EQUIVALENT TO IMODIUM)
     Route: 065
     Dates: start: 20230321
  7. M D1000 [Concomitant]
     Dosage: 1 DOSAGE FORM, AM (1 CAPSULE ONCE PER DAY AT BREAKFAST)
     Route: 065
     Dates: start: 20240323
  8. DIVALPROEX SODIUM [Concomitant]
     Active Substance: DIVALPROEX SODIUM
     Dosage: 1 DOSAGE FORM, PM (1 TABLET AT SUPPER)
     Route: 065
     Dates: start: 20240323
  9. DIVALPROEX SODIUM [Concomitant]
     Active Substance: DIVALPROEX SODIUM
     Dosage: 1 DOSAGE FORM, BID (1 TABLET TWICE PER DAY AT BREAKFAST AND SUPPER)
     Route: 065
     Dates: start: 20240323
  10. BENZTROPINE MESYLATE [Concomitant]
     Active Substance: BENZTROPINE MESYLATE
     Dosage: 1 DOSAGE FORM, BID (1 TABLET TWICE PER DAY IN THE MORNING AND AT BEDTIME)
     Route: 065
     Dates: start: 20240323
  11. ROSUVASTATIN [Concomitant]
     Active Substance: ROSUVASTATIN\ROSUVASTATIN CALCIUM
     Dosage: 1 DOSAGE FORM, PM (QHS 30 DAYS)
     Route: 065
     Dates: start: 20240323
  12. BISOPROLOL [Concomitant]
     Active Substance: BISOPROLOL\BISOPROLOL FUMARATE
     Dosage: 0.5 DOSAGE FORM, QD (1/2 TABLET ONCE PER DAY AT BREAKFAST)
     Route: 065
     Dates: start: 20240323
  13. SERTRALINE [Concomitant]
     Active Substance: SERTRALINE HYDROCHLORIDE
     Dosage: 1 DOSAGE FORM, PM (1 CAPSULE ONCE PER DAY AT SUPPER)
     Route: 065
  14. HALOPERIDOL [Concomitant]
     Active Substance: HALOPERIDOL
     Dosage: 1 DOSAGE FORM, BID (1 TABLET TWICE PER DAY IN THE MORNING AND AT BEDTIME)
     Route: 065
     Dates: start: 20240323

REACTIONS (2)
  - Choking [Fatal]
  - Immature granulocyte count increased [Not Recovered/Not Resolved]

NARRATIVE: CASE EVENT DATE: 20220607
